FAERS Safety Report 21607185 (Version 4)
Quarter: 2022Q4

REPORT INFORMATION
  Report Type: Spontaneous
  Country: US (occurrence: US)
  Receive Date: 20221117
  Receipt Date: 20221221
  Transmission Date: 20230113
  Serious: No
  Sender: FDA-Public Use
  Company Number: US-PFIZER INC-PV202200077080

PATIENT
  Age: 52 Year
  Sex: Female

DRUGS (4)
  1. NIVESTYM [Suspect]
     Active Substance: FILGRASTIM-AAFI
     Indication: Chemotherapy
     Dosage: 480MCG/0.8M/L, CYCLIC(1 SYRINGE (OF 480MCG/0.8M/L) INJECTION DAILY
  2. NIVESTYM [Suspect]
     Active Substance: FILGRASTIM-AAFI
     Dosage: 960 UG/ML, CYCLIC (480MCG/0.5ML/ 6-7 DAYS AFTER EVERY CHEMO TREATMENT)
     Dates: start: 202210
  3. NIVESTYM [Suspect]
     Active Substance: FILGRASTIM-AAFI
     Dosage: 420 MG
  4. NIVESTYM [Suspect]
     Active Substance: FILGRASTIM-AAFI
     Dosage: 480MCG/0.5ML

REACTIONS (3)
  - Product prescribing error [Unknown]
  - Illness [Not Recovered/Not Resolved]
  - Malaise [Unknown]
